FAERS Safety Report 25159662 (Version 2)
Quarter: 2025Q2

REPORT INFORMATION
  Report Type: Spontaneous
  Country: US (occurrence: US)
  Receive Date: 20250404
  Receipt Date: 20250411
  Transmission Date: 20250716
  Serious: Yes (Hospitalization)
  Sender: RANBAXY
  Company Number: US-SUN PHARMACEUTICAL INDUSTRIES LTD-2025R1-501869

PATIENT
  Age: 40 Year
  Sex: Male

DRUGS (1)
  1. PREDNISONE [Suspect]
     Active Substance: PREDNISONE
     Indication: Sarcoidosis
     Route: 065

REACTIONS (1)
  - Disease recurrence [Unknown]
